FAERS Safety Report 5577382-0 (Version None)
Quarter: 2007Q4

REPORT INFORMATION
  Report Type: 
  Country: None (occurrence: None)
  Receive Date: 20071228
  Receipt Date: 20071217
  Transmission Date: 20080405
  Serious: Yes (Other)
  Sender: FDA-Public Use
  Company Number: US-PFIZER INC-2007106390

PATIENT
  Sex: Female

DRUGS (2)
  1. RELPAX [Suspect]
     Indication: MIGRAINE
     Route: 048
     Dates: start: 20060524, end: 20070330
  2. NEXIUM [Concomitant]

REACTIONS (2)
  - PARAESTHESIA ORAL [None]
  - SWOLLEN TONGUE [None]
